FAERS Safety Report 5291242-4 (Version None)
Quarter: 2007Q2

REPORT INFORMATION
  Report Type: 
  Country: None (occurrence: None)
  Receive Date: 20070402
  Receipt Date: 20070319
  Transmission Date: 20071010
  Serious: Yes (Other)
  Sender: FDA-Public Use
  Company Number: CHNY2007BE01377

PATIENT
  Age: 37 Year
  Sex: Female

DRUGS (2)
  1. PSEUDOEPHEDRINE (NCH) (PSEUDOEPHEDRINE HYDROCHLORIDE) UNKNOWN [Suspect]
     Indication: BRONCHITIS
     Dosage: 480 MG, QD
  2. FLUOXETINE [Suspect]
     Dosage: 20 MG, QD

REACTIONS (4)
  - AFFECTIVE DISORDER [None]
  - DRUG INTERACTION [None]
  - MANIA [None]
  - SEROTONIN SYNDROME [None]
